FAERS Safety Report 15301806 (Version 1)
Quarter: 2018Q3

REPORT INFORMATION
  Report Type: Spontaneous
  Country: US (occurrence: US)
  Receive Date: 20180821
  Receipt Date: 20180821
  Transmission Date: 20181010
  Serious: No
  Sender: FDA-Public Use
  Company Number: US-MANNKIND CORPORATION-2017MK000191

PATIENT
  Sex: Female
  Weight: 59.02 kg

DRUGS (15)
  1. AFREZZA [Suspect]
     Active Substance: INSULIN HUMAN
     Indication: TYPE 1 DIABETES MELLITUS
     Dates: start: 201707, end: 201709
  2. VITAMIN D [Concomitant]
     Active Substance: CHOLECALCIFEROL
     Indication: VITAMIN SUPPLEMENTATION
  3. AFREZZA [Suspect]
     Active Substance: INSULIN HUMAN
     Dates: start: 201709
  4. IRON [Concomitant]
     Active Substance: IRON
     Indication: MINERAL SUPPLEMENTATION
     Route: 048
  5. GABAPENTIN. [Concomitant]
     Active Substance: GABAPENTIN
     Indication: DIABETES MELLITUS
     Route: 048
  6. TRESIBA [Concomitant]
     Active Substance: INSULIN DEGLUDEC
     Indication: DIABETES MELLITUS
     Dates: start: 201705, end: 201709
  7. TIMOLOL. [Concomitant]
     Active Substance: TIMOLOL
     Indication: EYE OPERATION
     Route: 047
     Dates: start: 201708
  8. MULTIVITAMIN [Concomitant]
     Active Substance: VITAMINS
     Indication: VITAMIN SUPPLEMENTATION
     Route: 048
  9. VENLAFAXINE [Concomitant]
     Active Substance: VENLAFAXINE HYDROCHLORIDE
     Indication: ANXIETY
     Route: 048
  10. TIMOLOL. [Concomitant]
     Active Substance: TIMOLOL
     Indication: EYE HAEMORRHAGE
  11. LATANOPROST. [Concomitant]
     Active Substance: LATANOPROST
     Indication: EYE OPERATION
     Route: 047
     Dates: start: 201708
  12. AFREZZA [Suspect]
     Active Substance: INSULIN HUMAN
     Dates: start: 201707, end: 201709
  13. TRESIBA [Concomitant]
     Active Substance: INSULIN DEGLUDEC
     Dates: start: 201709
  14. LATANOPROST. [Concomitant]
     Active Substance: LATANOPROST
     Indication: EYE HAEMORRHAGE
  15. CALCIUM [Concomitant]
     Active Substance: CALCIUM
     Indication: OSTEOPOROSIS
     Route: 048
     Dates: start: 201708

REACTIONS (5)
  - Blood glucose increased [Unknown]
  - Drug ineffective [Unknown]
  - Eye operation [Unknown]
  - Nasopharyngitis [Recovered/Resolved]
  - Blood glucose decreased [Unknown]

NARRATIVE: CASE EVENT DATE: 2017
